FAERS Safety Report 7642235-0 (Version None)
Quarter: 2011Q3

REPORT INFORMATION
  Report Type: 
  Country: None (occurrence: None)
  Receive Date: 20110728
  Receipt Date: 20110718
  Transmission Date: 20111222
  Serious: No
  Sender: FDA-Public Use
  Company Number: PHHY2011IT64956

PATIENT

DRUGS (3)
  1. TASIGNA [Suspect]
     Dosage: 400 MG, DAILY
     Route: 048
  2. LEVOTHYROXINE SODIUM [Concomitant]
  3. TASIGNA [Suspect]
     Dosage: 800 MG, DAILY
     Route: 048
     Dates: start: 20081023

REACTIONS (1)
  - MUSCULOSKELETAL PAIN [None]
